FAERS Safety Report 21974899 (Version 1)
Quarter: 2023Q1

REPORT INFORMATION
  Report Type: Spontaneous
  Country: CH (occurrence: CH)
  Receive Date: 20230209
  Receipt Date: 20230209
  Transmission Date: 20230418
  Serious: Yes (Hospitalization)
  Sender: FDA-Public Use
  Company Number: CH-SM-2022-22643

PATIENT
  Age: 51 Year
  Sex: Female

DRUGS (17)
  1. CLOZAPINE [Suspect]
     Active Substance: CLOZAPINE
     Indication: Bipolar disorder
     Dosage: 200 MILLIGRAM DAILY; CLOZAPIN MEPHA  (CLOZAPINE) 100 MG ORAL INTAKE SINCE UNKNOWN TIME AT HOSPITAL A
     Route: 048
     Dates: end: 20221129
  2. CLOZAPINE [Suspect]
     Active Substance: CLOZAPINE
     Indication: Bipolar disorder
     Dosage: CLOZAPIN MEPHA  (CLOZAPINE) 100 MG ORAL INTAKE SINCE UNKNOWN TIME AT HOSPITAL ADMISSION ON ,
     Route: 048
     Dates: start: 20221130
  3. VALIUM [Suspect]
     Active Substance: DIAZEPAM
     Indication: Bipolar disorder
     Dosage: 5 MILLIGRAM DAILY; VALIUM  (DIAZEPAM) 10 MG 0-0-0-0.5 ORAL INTAKE SINCE UNKNOWN DATE, UPON HOSPITAL
     Route: 048
     Dates: end: 20221129
  4. VALPROATE SODIUM [Suspect]
     Active Substance: VALPROATE SODIUM
     Indication: Bipolar disorder
     Dosage: 150 MILLIGRAM DAILY; ORFIRIL  LONG RET KAPS (VALPROIC ACID) 150 MG 0-0-0-1 ORAL INTAKE SINCE UNKNOWN
     Route: 048
  5. VALPROATE SODIUM [Suspect]
     Active Substance: VALPROATE SODIUM
     Indication: Bipolar disorder
     Dosage: 3 DOSAGE FORMS DAILY; ORFIRIL  LONG RETARD-MINITABL DEPOTGRAN (VALPROIC ACID) 500 MG 1-0-0-2 ORAL IN
     Route: 048
  6. LITHIUM [Suspect]
     Active Substance: LITHIUM
     Indication: Bipolar disorder
     Dosage: 2.5 DOSAGE FORMS DAILY; QUILONORM  (LITHIUM) 12.2 MMOL 1-0-0-1.5 ORAL INTAKE SINCE UNKNOWN DATE, RED
     Route: 048
  7. PREGABALIN [Suspect]
     Active Substance: PREGABALIN
     Indication: Bipolar disorder
     Dosage: 300 MILLIGRAM DAILY; PREGABALIN PFIZER  (PREGABALIN) 150 MG 1-0-1-0 ORAL INTAKE SINCE UNKNOWN DATE E
     Route: 048
  8. FOLIC ACID [Concomitant]
     Active Substance: FOLIC ACID
     Indication: Product used for unknown indication
     Dosage: 5 MILLIGRAM DAILY; ACIDUM FOLICUM STREULI  (FOLIC ACID) 5 MG 1-0-0-0, STOPPED AT HOSPITAL ADMISSION
     Route: 048
     Dates: end: 20221129
  9. AMLODIPINE [Concomitant]
     Active Substance: AMLODIPINE BESYLATE
     Indication: Product used for unknown indication
     Dosage: 2.5 MILLIGRAM DAILY; AMLODIPIN SANDOZ  (AMLODIPINE) 5 MG 0.5-0-0-0 STOPPED 12/16/2022 WITH LOW BLOOD
     Route: 048
     Dates: end: 20221216
  10. EUTHYROX [Concomitant]
     Active Substance: LEVOTHYROXINE SODIUM
     Indication: Product used for unknown indication
     Dosage: 100 MICROGRAM DAILY; EUTHYROX  (LEVOTHYROXIN NATRIUM) 100 MCG 1-0-0-0
     Route: 048
  11. MAGNESIUM ASPARTATE HYDROCHLORIDE [Concomitant]
     Active Substance: MAGNESIUM ASPARTATE HYDROCHLORIDE
     Indication: Product used for unknown indication
     Dosage: 2.5 MILLIMOL DAILY; MAGNESIOCARD  (MAGNESIUM) 5 MMOL 0-0-0-0.5 STOPPED ON DECEMBER 4TH, 2022, UNCLEA
     Route: 048
     Dates: end: 20221204
  12. SODIUM PICOSULFATE [Concomitant]
     Active Substance: SODIUM PICOSULFATE
     Indication: Product used for unknown indication
     Dosage: LAXOBERON  (SODIUM PICOSULFATE) 20 DROPS/DAY IN RESERVE ; AS NECESSARY
     Route: 048
  13. PANTOPRAZOLE SODIUM [Concomitant]
     Active Substance: PANTOPRAZOLE SODIUM
     Indication: Product used for unknown indication
     Dosage: 20 MILLIGRAM DAILY; PANTOPRAZOLE SANDOZ  (PANTOPRAZOLE) 20 MG 1-0-0-0, SWITCH TO NEXIUM  (ESOMEPRAZO
     Route: 048
     Dates: end: 20221206
  14. RAMIPRIL MEPHA [Concomitant]
     Indication: Product used for unknown indication
     Dosage: 10 MILLIGRAM DAILY; RAMIPRIL MEPHA  (RAMIPRIL) 10 MG 1-0-0-0
     Route: 048
  15. TROSPIUM [Concomitant]
     Active Substance: TROSPIUM
     Indication: Product used for unknown indication
     Dosage: 2 DOSAGE FORMS DAILY; SPASMO-URGENIN  NEO (TROSPIUM) 1-0-1-0
     Route: 048
  16. TORSEMIDE [Concomitant]
     Active Substance: TORSEMIDE
     Indication: Product used for unknown indication
     Dosage: 5 MILLIGRAM DAILY; TOREM  (TORASEMID) 5 MG 1-0-0-0
     Route: 048
  17. CHOLECALCIFEROL [Concomitant]
     Active Substance: CHOLECALCIFEROL
     Indication: Product used for unknown indication
     Dosage: 1000 IU (INTERNATIONAL UNIT) DAILY; VI-DE 3  (VITAMIN D3) DROPS 1000 IU / DAY
     Route: 048

REACTIONS (1)
  - Disturbance in attention [Recovering/Resolving]

NARRATIVE: CASE EVENT DATE: 20221129
